FAERS Safety Report 15789493 (Version 2)
Quarter: 2019Q1

REPORT INFORMATION
  Report Type: Spontaneous
  Country: US (occurrence: US)
  Receive Date: 20190104
  Receipt Date: 20190323
  Transmission Date: 20190417
  Serious: No
  Sender: FDA-Public Use
  Company Number: US-TEVA-2018-US-986381

PATIENT
  Sex: Female
  Weight: 77 kg

DRUGS (11)
  1. QVAR REDIHALER [Suspect]
     Active Substance: BECLOMETHASONE DIPROPIONATE
     Indication: ASTHMA
     Dosage: 8.7 GRAM DAILY; INHALE 1 PUFF INTO LUNGS 2 TIMES DAILY
     Route: 055
     Dates: start: 20180829
  2. XOPENEX [Concomitant]
     Active Substance: LEVALBUTEROL HYDROCHLORIDE
     Indication: ASTHMA
     Route: 065
  3. XOPENEX 1.25 MG/3ML [Concomitant]
     Indication: WHEEZING
     Dosage: TAKE 3 ML BY NEBULIZATION EVERY 4 HOURS AS NEEDED, DOSE STRENGTH 1.25MG/3ML
     Route: 065
     Dates: start: 20171113
  4. BACTRIM [Concomitant]
     Active Substance: SULFAMETHOXAZOLE\TRIMETHOPRIM
     Indication: RASH
     Dosage: TAKE BY MOUTH EVERY 6 HOURS AS NEEDED ABOUT 400-400-40 MG/5 ML SUSPENSION
     Route: 065
  5. CEPHALEXIN. [Concomitant]
     Active Substance: CEPHALEXIN
     Indication: NAUSEA
     Route: 065
  6. CECLOR [Concomitant]
     Active Substance: CEFACLOR
     Indication: RASH
     Route: 065
  7. XOPENEX HFA 45 MCG/ACT INHALER [Concomitant]
     Dosage: INHALE 1 TO 2 PUFFS INTO THE LUNGS AS NEEDED
     Route: 055
     Dates: start: 20181031
  8. PROZAC [Concomitant]
     Active Substance: FLUOXETINE HYDROCHLORIDE
     Indication: ANXIETY
     Route: 065
  9. DEXILANT 30MG CAPSULE [Concomitant]
     Dosage: TAKE, 1 CAPSULE BY MOUTH DAILY
     Route: 048
     Dates: start: 20190125
  10. DEPAKOTE [Concomitant]
     Active Substance: DIVALPROEX SODIUM
     Route: 065
  11. CARAFATE 1G TABLET [Concomitant]
     Dosage: TAKE 1 TABLET BY MOUTH 4 TIMES DAILY
     Route: 048
     Dates: start: 20180426

REACTIONS (6)
  - Product substitution issue [Unknown]
  - Nasal congestion [Recovered/Resolved]
  - Viral infection [Unknown]
  - Weight increased [Not Recovered/Not Resolved]
  - Sneezing [Recovered/Resolved]
  - Dyspnoea [Unknown]

NARRATIVE: CASE EVENT DATE: 2018
